FAERS Safety Report 16725554 (Version 1)
Quarter: 2019Q3

REPORT INFORMATION
  Report Type: Report from Study
  Country: CN (occurrence: CN)
  Receive Date: 20190821
  Receipt Date: 20190821
  Transmission Date: 20191005
  Serious: Yes (Death)
  Sender: FDA-Public Use
  Company Number: CN-PFIZER INC-2019358100

PATIENT

DRUGS (9)
  1. CYTARABINE. [Concomitant]
     Active Substance: CYTARABINE
     Indication: BONE MARROW CONDITIONING REGIMEN
     Dosage: UNK, DAILY (2 G M^-2 D^-1)
  2. GANCICLOVIR. [Concomitant]
     Active Substance: GANCICLOVIR
     Indication: ANTIVIRAL PROPHYLAXIS
     Dosage: 10 MG/KG, DAILY
  3. FLUDARABINE [Concomitant]
     Active Substance: FLUDARABINE PHOSPHATE
     Indication: BONE MARROW CONDITIONING REGIMEN
     Dosage: 30 MG/M2, DAILY
  4. G-CSF [Concomitant]
     Active Substance: GRANULOCYTE COLONY-STIMULATING FACTOR NOS
     Dosage: UNK (REINFUSED WITH G-CSF MOBILIZED DONOR PERIPHERAL BLOOD HEMATOPOIETIC STEM CELLS)
  5. SULFAMETOXYDIAZINE [Concomitant]
     Indication: ANTIFUNGAL PROPHYLAXIS
     Dosage: 2.0 G, DAILY (COMPOUND SULFAMETHOXINE, BEFORE TRANSPLANTATION)
  6. POSACONAZOLE [Concomitant]
     Active Substance: POSACONAZOLE
     Indication: ANTIFUNGAL PROPHYLAXIS
     Dosage: UNK
  7. METHOTREXATE. [Suspect]
     Active Substance: METHOTREXATE
     Indication: PROPHYLAXIS AGAINST GRAFT VERSUS HOST DISEASE
     Dosage: UNK (SHORT COURSE)
  8. DECITABINE. [Concomitant]
     Active Substance: DECITABINE
     Indication: BONE MARROW CONDITIONING REGIMEN
     Dosage: 20 MG/M2, DAILY
  9. BUSULFAN. [Concomitant]
     Active Substance: BUSULFAN
     Indication: BONE MARROW CONDITIONING REGIMEN
     Dosage: 3.2 MG/KG, DAILY

REACTIONS (2)
  - Drug ineffective [Fatal]
  - Chronic graft versus host disease [Fatal]
